FAERS Safety Report 7647259-5 (Version None)
Quarter: 2011Q3

REPORT INFORMATION
  Report Type: 
  Country: None (occurrence: None)
  Receive Date: 20110801
  Receipt Date: 20110722
  Transmission Date: 20111222
  Serious: Yes (Hospitalization)
  Sender: FDA-Public Use
  Company Number: US-ABBOTT-11P-163-0841377-00

PATIENT
  Sex: Female

DRUGS (4)
  1. HUMIRA [Suspect]
     Route: 058
  2. INFLIXIMAB [Concomitant]
     Indication: CROHN'S DISEASE
  3. HUMIRA [Suspect]
     Indication: CROHN'S DISEASE
     Route: 058
     Dates: start: 20080528, end: 20080528
  4. HUMIRA [Suspect]
     Route: 058
     Dates: end: 20081218

REACTIONS (2)
  - CROHN'S DISEASE [None]
  - LARGE INTESTINAL STRICTURE [None]
